FAERS Safety Report 6566349-1 (Version None)
Quarter: 2010Q1

REPORT INFORMATION
  Report Type: 
  Country: None (occurrence: None)
  Receive Date: 20100202
  Receipt Date: 20100122
  Transmission Date: 20100710
  Serious: Yes (Hospitalization)
  Sender: FDA-Public Use
  Company Number: US-ELI_LILLY_AND_COMPANY-US200911001578

PATIENT
  Age: 67 Year
  Sex: Male

DRUGS (5)
  1. FORTEO [Suspect]
     Indication: OSTEOPOROSIS
     Dosage: 20 UG, DAILY (1/D)
     Route: 065
     Dates: start: 20091002
  2. NEXIUM [Concomitant]
     Dosage: UNK, UNKNOWN
     Route: 065
  3. FOLBIC [Concomitant]
     Dosage: UNK, UNKNOWN
     Route: 065
  4. OMEGA [Concomitant]
     Dosage: UNK, UNKNOWN
     Route: 065
  5. FINASTERIDE [Concomitant]
     Dosage: UNK, UNKNOWN
     Route: 065

REACTIONS (2)
  - CHEST PAIN [None]
  - NON-CARDIAC CHEST PAIN [None]
